FAERS Safety Report 4565196-X (Version None)
Quarter: 2005Q1

REPORT INFORMATION
  Report Type: 
  Country: None (occurrence: None)
  Receive Date: 20050127
  Receipt Date: 20050127
  Transmission Date: 20050727
  Serious: Yes (Hospitalization)
  Sender: FDA-Public Use
  Company Number: None

PATIENT
  Age: 76 Year
  Sex: Male

DRUGS (2)
  1. FLUCONAZOLE [Suspect]
     Indication: OESOPHAGEAL CANDIDIASIS
     Dosage: 100 MG DAILY
  2. TACROLIMUS [Suspect]
     Indication: RENAL DISORDER
     Dosage: 3 MG BID

REACTIONS (10)
  - CHEST PAIN [None]
  - DEHYDRATION [None]
  - DIZZINESS [None]
  - DIZZINESS POSTURAL [None]
  - DRUG TOXICITY [None]
  - OESOPHAGEAL CANDIDIASIS [None]
  - ORAL INTAKE REDUCED [None]
  - ORTHOSTATIC HYPOTENSION [None]
  - PANCYTOPENIA [None]
  - RENAL FAILURE ACUTE [None]
